FAERS Safety Report 4433906-8 (Version None)
Quarter: 2004Q3

REPORT INFORMATION
  Report Type: 
  Country: None (occurrence: None)
  Receive Date: 20040825
  Receipt Date: 20040819
  Transmission Date: 20050211
  Serious: Yes (Other)
  Sender: FDA-Public Use
  Company Number: RB-894-2004

PATIENT
  Sex: Male

DRUGS (2)
  1. BUPRENORPHINE HYDROCHLORIDE [Suspect]
     Indication: DRUG DEPENDENCE
     Dosage: 6 MG/8 MG    SL
     Route: 060
  2. DIAZEPAM [Suspect]

REACTIONS (2)
  - ASTHMA [None]
  - CONDITION AGGRAVATED [None]
